FAERS Safety Report 11889044 (Version 2)
Quarter: 2016Q2

REPORT INFORMATION
  Report Type: Report from Study
  Country: US (occurrence: US)
  Receive Date: 20160105
  Receipt Date: 20160406
  Transmission Date: 20160815
  Serious: Yes (Hospitalization)
  Sender: FDA-Public Use
  Company Number: US-BAYER-2015-484682

PATIENT
  Age: 65 Year
  Sex: Female

DRUGS (17)
  1. XARELTO [Suspect]
     Active Substance: RIVAROXABAN
     Dosage: UNK
     Route: 048
  2. REMODULIN [Concomitant]
     Active Substance: TREPROSTINIL
     Indication: PULMONARY HYPERTENSION
     Dosage: 0.03 ML/HR CONTINUOUS
     Route: 058
  3. REMODULIN [Concomitant]
     Active Substance: TREPROSTINIL
     Indication: PULMONARY HYPERTENSION
     Dosage: 183 NG/KG/MIN, 23,75 MG,
     Route: 042
  4. METOPROLOL TARTRATE. [Concomitant]
     Active Substance: METOPROLOL TARTRATE
     Indication: CARDIOVASCULAR DISORDER
     Dosage: 12.5 MG, TID
  5. FAMOTIDINE. [Concomitant]
     Active Substance: FAMOTIDINE
     Indication: GASTROINTESTINAL DISORDER
     Dosage: DAILY DOSE 40 MG
  6. CLOPIDOGREL [Concomitant]
     Active Substance: CLOPIDOGREL BISULFATE
     Indication: COAGULOPATHY
     Dosage: DAILY DOSE 75 MG
     Route: 048
  7. PANTOPRAZOLE [Concomitant]
     Active Substance: PANTOPRAZOLE SODIUM
     Indication: GASTROINTESTINAL DISORDER
     Dosage: DAILY DOSE 40 MG
     Route: 048
  8. ADEMPAS [Suspect]
     Active Substance: RIOCIGUAT
     Indication: PULMONARY ARTERIAL HYPERTENSION
     Dosage: 1 MG, TID
     Route: 048
     Dates: start: 20151208
  9. HEPARIN [Concomitant]
     Active Substance: HEPARIN SODIUM
     Indication: COAGULOPATHY
     Dosage: 5000 U, BID
  10. OPSUMIT [Concomitant]
     Active Substance: MACITENTAN
     Dosage: DAILY DOSE 10 MG
  11. CALCIUM [CALCIUM GLUCONATE] [Concomitant]
  12. ESCITALOPRAM [Concomitant]
     Active Substance: ESCITALOPRAM OXALATE
     Dosage: DAILY DOSE 10 MG
     Route: 048
  13. XARELTO [Suspect]
     Active Substance: RIVAROXABAN
     Dosage: DAILY DOSE 10 MG
  14. METOCLOPRAMIDE. [Concomitant]
     Active Substance: METOCLOPRAMIDE
     Indication: NERVOUS SYSTEM DISORDER
     Dosage: 10 MG, UNK
     Route: 030
  15. ADEMPAS [Suspect]
     Active Substance: RIOCIGUAT
     Indication: PULMONARY ARTERIAL HYPERTENSION
     Dosage: 1 MG, TID
     Route: 048
  16. ADEMPAS [Suspect]
     Active Substance: RIOCIGUAT
     Indication: PULMONARY ARTERIAL HYPERTENSION
     Dosage: 2 MG, TID
     Route: 048
     Dates: start: 20140612
  17. LORATADINE. [Concomitant]
     Active Substance: LORATADINE
     Indication: RESPIRATORY DISORDER
     Dosage: DAILY DOSE 10 MG
     Route: 048

REACTIONS (17)
  - Vaginal haemorrhage [Recovering/Resolving]
  - Presyncope [None]
  - Intestinal obstruction [None]
  - Hypokalaemia [None]
  - Abdominal pain upper [None]
  - Hypomagnesaemia [None]
  - Fluid overload [None]
  - Hypotension [None]
  - Nausea [None]
  - Tachycardia [None]
  - Dehydration [None]
  - Polydipsia [None]
  - Coagulopathy [None]
  - Dizziness postural [None]
  - Oedema [None]
  - Urine output increased [None]
  - Fluid retention [None]

NARRATIVE: CASE EVENT DATE: 201512
